FAERS Safety Report 5989923-X (Version None)
Quarter: 2008Q4

REPORT INFORMATION
  Report Type: 
  Country: None (occurrence: None)
  Receive Date: 20081210
  Receipt Date: 20081023
  Transmission Date: 20090506
  Serious: Yes (Other)
  Sender: FDA-Public Use
  Company Number: 6043862

PATIENT
  Age: 53 Year
  Sex: Female

DRUGS (2)
  1. LEVOTHYROXINE SODIUM [Suspect]
     Indication: DRUG USE FOR UNKNOWN INDICATION
     Dosage: 125 MCG (125 MCG, 1 IN 1 D)
     Route: 048
     Dates: start: 20050101, end: 20080701
  2. PREVISCAN (PENTOXIFYLLINE) [Concomitant]

REACTIONS (5)
  - AGITATION [None]
  - HYPERTHYROIDISM [None]
  - INSOMNIA [None]
  - PALPITATIONS [None]
  - PYREXIA [None]
